FAERS Safety Report 5674085-9 (Version None)
Quarter: 2008Q1

REPORT INFORMATION
  Report Type: 
  Country: None (occurrence: None)
  Receive Date: 20080320
  Receipt Date: 20080313
  Transmission Date: 20080703
  Serious: Yes (Hospitalization)
  Sender: FDA-Public Use
  Company Number: FR-ELI_LILLY_AND_COMPANY-FR200803003521

PATIENT
  Age: 38 Year
  Sex: Male

DRUGS (1)
  1. ZYPREXA [Suspect]
     Dosage: 20 MG, UNKNOWN
     Route: 048
     Dates: start: 20050101, end: 20080101

REACTIONS (9)
  - ANOREXIA [None]
  - HEPATOCELLULAR INJURY [None]
  - HOSPITALISATION [None]
  - HYPERHIDROSIS [None]
  - HYPOTHERMIA [None]
  - MUSCULAR WEAKNESS [None]
  - NAUSEA [None]
  - PAIN IN EXTREMITY [None]
  - VENOUS THROMBOSIS [None]
